FAERS Safety Report 8479902-5 (Version None)
Quarter: 2012Q2

REPORT INFORMATION
  Report Type: 
  Country: None (occurrence: None)
  Receive Date: 20120629
  Receipt Date: 20120622
  Transmission Date: 20120825
  Serious: Yes (Hospitalization)
  Sender: FDA-Public Use
  Company Number: DE-ABBOTT-12P-062-0948581-00

PATIENT
  Sex: Male
  Weight: 55 kg

DRUGS (2)
  1. TRUVADA [Concomitant]
     Indication: PRODUCT USED FOR UNKNOWN INDICATION
     Dosage: 200/245
     Dates: start: 20070327
  2. KALETRA [Suspect]
     Indication: HIV INFECTION
     Dates: start: 20070319

REACTIONS (1)
  - HODGKIN'S DISEASE [None]
